FAERS Safety Report 14417358 (Version 1)
Quarter: 2018Q1

REPORT INFORMATION
  Report Type: Spontaneous
  Country: US (occurrence: US)
  Receive Date: 20180119
  Receipt Date: 20180119
  Transmission Date: 20180509
  Serious: No
  Sender: FDA-Public Use
  Company Number: None

PATIENT
  Age: 57 Year
  Sex: Female

DRUGS (1)
  1. TYMLOS [Suspect]
     Active Substance: ABALOPARATIDE

REACTIONS (4)
  - Nausea [None]
  - Liquid product physical issue [None]
  - Vomiting [None]
  - Dizziness [None]

NARRATIVE: CASE EVENT DATE: 20180119
